FAERS Safety Report 12315112 (Version 3)
Quarter: 2017Q1

REPORT INFORMATION
  Report Type: Report from Study
  Country: US (occurrence: US)
  Receive Date: 20160428
  Receipt Date: 20170104
  Transmission Date: 20170428
  Serious: Yes (Hospitalization)
  Sender: FDA-Public Use
  Company Number: US-ROCHE-1743744

PATIENT
  Age: 61 Year
  Sex: Female
  Weight: 82.7 kg

DRUGS (6)
  1. DOCETAXEL. [Suspect]
     Active Substance: DOCETAXEL
     Indication: HER-2 POSITIVE BREAST CANCER
     Dosage: LAST DOSE ADMNISTERATION DATE 23/FEB/2016?TOTAL DOSE ADMINISTERED AT LAST ADMINISTRATION 161MG?75 MG
     Route: 042
     Dates: start: 20160107, end: 20160504
  2. PERTUZUMAB [Suspect]
     Active Substance: PERTUZUMAB
     Dosage: LAST DOSE ADMNISTERATION DATE 23/FEB/2016?TOTAL DOSE ADMINISTERED AT LAST INFUSION 420 MG?OVER 30-60
     Route: 041
     Dates: start: 20160128, end: 20160504
  3. TRASTUZUMAB [Suspect]
     Active Substance: TRASTUZUMAB
     Indication: HER-2 POSITIVE BREAST CANCER
     Dosage: LOADING DOSE?OVER 90 MIN ON DAY 1 OF CYCLE 1
     Route: 041
     Dates: start: 20160107
  4. CARBOPLATIN. [Suspect]
     Active Substance: CARBOPLATIN
     Indication: HER-2 POSITIVE BREAST CANCER
     Dosage: AUC=6 MG/ML/MIN IV OVER 30-60 MIN ON DAY 1 OF EVERY CYCLE?LAST DOSE ADMNISTERATION DATE 23/FEB/2016
     Route: 042
     Dates: start: 20160107, end: 20160504
  5. PERTUZUMAB [Suspect]
     Active Substance: PERTUZUMAB
     Indication: HER-2 POSITIVE BREAST CANCER
     Dosage: LOADING DOSE?OVER 60 MIN ON DAY 1 OF CYCLE 1
     Route: 041
     Dates: start: 20160107
  6. TRASTUZUMAB [Suspect]
     Active Substance: TRASTUZUMAB
     Dosage: 6 MG/KG X 95.3 KG, OVER 30-60 MIN ON DAY 1 (MAINTAINANCE DOSE)?LAST DOSE ADMNISTERATION DATE 23/FEB/
     Route: 041
     Dates: start: 20160128, end: 20160504

REACTIONS (8)
  - Dehydration [Recovered/Resolved]
  - Hypocalcaemia [Recovered/Resolved]
  - Colitis [Recovered/Resolved]
  - Nausea [Recovered/Resolved]
  - Anaemia [Recovered/Resolved]
  - Gastritis [Recovered/Resolved]
  - Urinary tract infection [Recovered/Resolved with Sequelae]
  - Mucosal infection [Recovered/Resolved]

NARRATIVE: CASE EVENT DATE: 20160301
